FAERS Safety Report 15612501 (Version 1)
Quarter: 2018Q4

REPORT INFORMATION
  Report Type: Spontaneous
  Country: FR (occurrence: FR)
  Receive Date: 20181113
  Receipt Date: 20181113
  Transmission Date: 20190205
  Serious: Yes (Congenital Anomaly)
  Sender: FDA-Public Use
  Company Number: PHHY2018FR151990

PATIENT

DRUGS (3)
  1. LEVETIRACETAM. [Suspect]
     Active Substance: LEVETIRACETAM
     Indication: FOETAL EXPOSURE DURING PREGNANCY
     Dosage: MATERNAL DOSE 250 MG,QD
     Route: 064
     Dates: start: 20110711, end: 20120406
  2. DEPAKINE [Suspect]
     Active Substance: VALPROATE SODIUM
     Indication: FOETAL EXPOSURE DURING PREGNANCY
     Dosage: MATERNAL DOSE 500 MG,BID
     Route: 064
     Dates: start: 20110711, end: 201202
  3. LAMOTRIGINE. [Suspect]
     Active Substance: LAMOTRIGINE
     Indication: FOETAL EXPOSURE DURING PREGNANCY
     Dosage: MATERNAL DOSE 25 MG,BID
     Route: 064
     Dates: start: 20110711, end: 20120406

REACTIONS (3)
  - Multiple congenital abnormalities [Not Recovered/Not Resolved]
  - Foetal exposure timing unspecified [Unknown]
  - Congenital renal cyst [Recovered/Resolved with Sequelae]

NARRATIVE: CASE EVENT DATE: 20120406
